FAERS Safety Report 9825130 (Version 1)
Quarter: 2013Q4

REPORT INFORMATION
  Report Type: Spontaneous
  Country: US (occurrence: None)
  Receive Date: 20131028
  Receipt Date: 20131028
  Transmission Date: 20140711
  Serious: Yes (Other)
  Sender: FDA-Public Use
  Company Number: 2013US001115

PATIENT
  Age: 67 Year
  Sex: Male
  Weight: 71.2 kg

DRUGS (9)
  1. ICLUSIG (PONATINIB) TABLET, 45MG [Suspect]
     Indication: CHRONIC MYELOID LEUKAEMIA
     Dosage: 45 MG, QD, ORAL
     Route: 048
     Dates: start: 20130128, end: 20130202
  2. CALCIUM (CALCIUM) [Concomitant]
  3. Q10 (UBIDECARENONE) [Concomitant]
  4. MAGNESIUM (MAGNESIUM) [Concomitant]
  5. STRONTIUM (STRONTIUM) [Concomitant]
  6. VITAMIN B3 (NICOTINAMIDE) [Concomitant]
  7. LEXAPRO (ESCITALOPRAM OXALATE) [Concomitant]
  8. WELLBUTRIN (BUPROPION HYDROCHLORIDE) [Concomitant]
  9. NIACINAMIDE (NIACINAMIDE) [Concomitant]

REACTIONS (7)
  - Dysphonia [None]
  - Anorectal discomfort [None]
  - Urethritis noninfective [None]
  - Insomnia [None]
  - Abdominal pain upper [None]
  - Weight decreased [None]
  - Oropharyngeal pain [None]
